FAERS Safety Report 5728385-4 (Version None)
Quarter: 2008Q2

REPORT INFORMATION
  Report Type: 
  Country: None (occurrence: None)
  Receive Date: 20080506
  Receipt Date: 20080428
  Transmission Date: 20081010
  Serious: Yes (Other)
  Sender: FDA-Public Use
  Company Number: PHHY2008BR04046

PATIENT
  Age: 69 Year
  Sex: Female
  Weight: 64 kg

DRUGS (5)
  1. FORASEQ [Suspect]
     Indication: DYSPNOEA
     Dosage: 2/DAY
     Dates: start: 20040101
  2. PREDNISONE [Concomitant]
     Indication: DYSPNOEA
     Dosage: 20 MG, 2 TABLETS/DAY
     Dates: start: 20040101
  3. SYNTHROID [Concomitant]
     Indication: THYROID DISORDER
     Dosage: 1TABLET/DAY
     Route: 048
  4. LOSARTAN POTASSIUM [Concomitant]
     Indication: HYPERTENSION
     Dosage: 1 TABLET/DAY
     Route: 048
  5. DIAZEPAM [Concomitant]
     Indication: SLEEP DISORDER
     Dosage: 1 DF, QHS
     Route: 048

REACTIONS (5)
  - BENIGN NEOPLASM OF THYROID GLAND [None]
  - DEVICE MALFUNCTION [None]
  - DYSPNOEA [None]
  - FATIGUE [None]
  - THYROID ATROPHY [None]
